FAERS Safety Report 8614845-5 (Version None)
Quarter: 2012Q3

REPORT INFORMATION
  Report Type: 
  Country: None (occurrence: None)
  Receive Date: 20120823
  Receipt Date: 20120815
  Transmission Date: 20120928
  Serious: Yes (Death, Hospitalization, Other)
  Sender: FDA-Public Use
  Company Number: US-PFIZER INC-2012170372

PATIENT
  Age: 81 Year
  Sex: Female
  Weight: 59.864 kg

DRUGS (16)
  1. ATIVAN [Concomitant]
     Dosage: 2 MG, 3X/DAY
  2. LASIX [Concomitant]
     Dosage: 20 MG, Q.48 HOURS
  3. ALEVE [Concomitant]
     Dosage: UNK P.R.N.
  4. TRACLEER [Concomitant]
     Dosage: 125 MG, 2X/DAY
     Route: 048
     Dates: end: 20120730
  5. FERROUS SULFATE [Concomitant]
     Dosage: 325 MG, DAILY
  6. DUONEB [Concomitant]
     Dosage: Q.5 HOURS
  7. LIPITOR [Concomitant]
     Dosage: 40 MG, DAILY
  8. COUMADIN [Concomitant]
     Dosage: 6 MG, DAILY
  9. KLOR-CON [Concomitant]
     Dosage: 10 MEQ, Q.48 HOURS
  10. REVATIO [Suspect]
     Indication: PULMONARY HYPERTENSION
     Dosage: 20 MG, 3X/DAY
     Route: 048
     Dates: start: 20120220, end: 20120730
  11. CARDIZEM [Concomitant]
     Dosage: 60 MG, 3X/DAY
  12. TREPROSTINIL SODIUM [Suspect]
     Dosage: UNK
  13. ZETIA [Concomitant]
     Dosage: 10 MG, DAILY
  14. SYNTHROID [Concomitant]
     Dosage: 50 UG, DAILY
  15. DIGOXIN [Concomitant]
     Dosage: 0.125 MG, DAILY
  16. PROTONIX [Concomitant]
     Dosage: 40 MG, DAILY

REACTIONS (13)
  - PRODUCTIVE COUGH [None]
  - PNEUMONIA FUNGAL [None]
  - ANTIBIOTIC RESISTANT STAPHYLOCOCCUS TEST POSITIVE [None]
  - CHRONIC OBSTRUCTIVE PULMONARY DISEASE [None]
  - MULTI-ORGAN FAILURE [None]
  - RESPIRATORY FAILURE [None]
  - WHEEZING [None]
  - FATIGUE [None]
  - LUNG DISORDER [None]
  - ASPERGILLUS TEST POSITIVE [None]
  - DYSPNOEA [None]
  - ASTHENIA [None]
  - PNEUMONIA STAPHYLOCOCCAL [None]
